FAERS Safety Report 16366304 (Version 3)
Quarter: 2019Q3

REPORT INFORMATION
  Report Type: Report from Study
  Country: JP (occurrence: JP)
  Receive Date: 20190529
  Receipt Date: 20190930
  Transmission Date: 20191004
  Serious: Yes (Other)
  Sender: FDA-Public Use
  Company Number: JP-009507513-1904JPN003132J

PATIENT
  Age: 63 Year
  Sex: Male
  Weight: 63 kg

DRUGS (4)
  1. VICCLOX [Concomitant]
     Active Substance: ACYCLOVIR SODIUM
     Indication: PROPHYLAXIS
     Dosage: 250 MILLIGRAM, QID
     Route: 048
     Dates: end: 20190330
  2. PREVYMIS [Suspect]
     Active Substance: LETERMOVIR
     Indication: ANTIVIRAL PROPHYLAXIS
     Dosage: 480 MILLIGRAM, QD, IN THE MORNING
     Route: 048
     Dates: start: 20190329, end: 20190408
  3. PROGRAF [Concomitant]
     Active Substance: TACROLIMUS\TACROLIMUS ANHYDROUS
     Dosage: PREPARED TO A BLOOD CONCENTRATION OF 8-12 NG/ML
     Route: 051
     Dates: end: 20190510
  4. PREVYMIS [Suspect]
     Active Substance: LETERMOVIR
     Dosage: 480 MILLIGRAM, QD, IN THE MORNING
     Route: 048
     Dates: start: 20190418, end: 20190426

REACTIONS (4)
  - Acute graft versus host disease in skin [Recovering/Resolving]
  - Mucosal disorder [Unknown]
  - Cytomegalovirus viraemia [Recovering/Resolving]
  - Acute graft versus host disease in intestine [Recovering/Resolving]

NARRATIVE: CASE EVENT DATE: 20190423
